FAERS Safety Report 8118578-3 (Version None)
Quarter: 2012Q1

REPORT INFORMATION
  Report Type: 
  Country: None (occurrence: None)
  Receive Date: 20120207
  Receipt Date: 20120206
  Transmission Date: 20120608
  Serious: No
  Sender: FDA-Public Use
  Company Number: US-PFIZER INC-2012032361

PATIENT
  Sex: Female
  Weight: 79 kg

DRUGS (9)
  1. VENLAFAXINE [Concomitant]
     Indication: DEPRESSION
  2. ASCORBIC ACID [Concomitant]
     Dosage: UNK
  3. CHANTIX [Suspect]
     Indication: SMOKING CESSATION THERAPY
     Dosage: 0.5 MG, 1X/DAY
     Route: 048
     Dates: start: 20120205
  4. ABILIFY [Concomitant]
     Dosage: UNK
  5. ZOLPIDEM [Concomitant]
     Indication: SLEEP DISORDER
     Dosage: UNK
  6. VENLAFAXINE [Concomitant]
     Indication: ANXIETY
     Dosage: UNK
  7. XANAX [Concomitant]
     Dosage: UNK
  8. FERROUS SULFATE [Concomitant]
     Indication: WHITE BLOOD CELL COUNT INCREASED
     Dosage: 325 MG, UNK
  9. MULTI-VITAMINS [Concomitant]
     Dosage: UNK

REACTIONS (1)
  - NAUSEA [None]
